FAERS Safety Report 25035862 (Version 2)
Quarter: 2025Q1

REPORT INFORMATION
  Report Type: Spontaneous
  Country: BE (occurrence: BE)
  Receive Date: 20250304
  Receipt Date: 20250315
  Transmission Date: 20250408
  Serious: Yes (Death, Life-Threatening)
  Sender: ACCORD
  Company Number: BE-MLMSERVICE-20250219-PI410492-00232-1

PATIENT
  Age: 7 Decade
  Sex: Male
  Weight: 80 kg

DRUGS (2)
  1. MYCOPHENOLATE MOFETIL [Suspect]
     Active Substance: MYCOPHENOLATE MOFETIL
     Indication: Immunosuppressant drug therapy
  2. TACROLIMUS [Suspect]
     Active Substance: TACROLIMUS
     Indication: Immunosuppressant drug therapy

REACTIONS (5)
  - Pneumocephalus [Fatal]
  - Aspergillus infection [Fatal]
  - Sinusitis [Fatal]
  - Sinus perforation [Fatal]
  - Systemic mycosis [Fatal]
